FAERS Safety Report 5746422-8 (Version None)
Quarter: 2008Q2

REPORT INFORMATION
  Report Type: 
  Country: None (occurrence: None)
  Receive Date: 20080522
  Receipt Date: 20080516
  Transmission Date: 20081010
  Serious: Yes (Other)
  Sender: FDA-Public Use
  Company Number: A0728297A

PATIENT
  Age: 47 Year
  Sex: Female

DRUGS (3)
  1. VERAMYST [Suspect]
     Dosage: 2SPR PER DAY
     Route: 045
  2. ASTELIN [Concomitant]
     Route: 045
  3. UNKNOWN [Concomitant]

REACTIONS (2)
  - DRY SKIN [None]
  - SKIN ATROPHY [None]
